FAERS Safety Report 15694027 (Version 1)
Quarter: 2018Q4

REPORT INFORMATION
  Report Type: Spontaneous
  Country: NL (occurrence: NL)
  Receive Date: 20181206
  Receipt Date: 20181206
  Transmission Date: 20190205
  Serious: Yes (Hospitalization)
  Sender: FDA-Public Use
  Company Number: NL-SA-2018SA329130

PATIENT
  Age: 38 Year
  Sex: Female

DRUGS (1)
  1. AUBAGIO [Suspect]
     Active Substance: TERIFLUNOMIDE
     Dosage: UNK
     Route: 048
     Dates: start: 201607

REACTIONS (6)
  - Malignant hypertension [Unknown]
  - Pleural effusion [Unknown]
  - Anaemia [Unknown]
  - Acute kidney injury [Unknown]
  - Hepatic failure [Unknown]
  - Cardiac failure [Unknown]
